FAERS Safety Report 19990089 (Version 4)
Quarter: 2024Q3

REPORT INFORMATION
  Report Type: Spontaneous
  Country: US (occurrence: US)
  Receive Date: 20211025
  Receipt Date: 20240925
  Transmission Date: 20241016
  Serious: No
  Sender: BIOGEN
  Company Number: US-BIOGEN-2020BI00834509

PATIENT
  Sex: Female

DRUGS (12)
  1. TECFIDERA [Suspect]
     Active Substance: DIMETHYL FUMARATE
     Indication: Multiple sclerosis
     Dosage: STARTING DOSE
     Route: 050
     Dates: start: 20150515
  2. TECFIDERA [Suspect]
     Active Substance: DIMETHYL FUMARATE
     Dosage: MAINTENANCE DOSE
     Route: 050
     Dates: start: 2020, end: 20200220
  3. BACLOFEN [Concomitant]
     Active Substance: BACLOFEN
     Route: 050
  4. RITALIN [Concomitant]
     Active Substance: METHYLPHENIDATE HYDROCHLORIDE
     Route: 050
  5. FLAXSEED [Concomitant]
     Active Substance: FLAX SEED
     Route: 050
  6. CBC [Concomitant]
     Route: 050
  7. LIORESAL [Concomitant]
     Active Substance: BACLOFEN
     Route: 050
  8. ABILIFY [Concomitant]
     Active Substance: ARIPIPRAZOLE
     Route: 050
  9. PROZAC [Concomitant]
     Active Substance: FLUOXETINE HYDROCHLORIDE
     Route: 050
  10. GABAPENTIN [Concomitant]
     Active Substance: GABAPENTIN
     Route: 050
  11. TRAZODONE [Concomitant]
     Active Substance: TRAZODONE HYDROCHLORIDE
     Route: 050
  12. ONABOTULINUMTOXINA [Concomitant]
     Active Substance: ONABOTULINUMTOXINA
     Route: 050

REACTIONS (9)
  - Product dose omission issue [Unknown]
  - Mobility decreased [Not Recovered/Not Resolved]
  - Visual impairment [Not Recovered/Not Resolved]
  - Back pain [Not Recovered/Not Resolved]
  - Constipation [Not Recovered/Not Resolved]
  - Gait disturbance [Not Recovered/Not Resolved]
  - Muscle tightness [Unknown]
  - Multiple sclerosis [Unknown]
  - Flushing [Unknown]
